FAERS Safety Report 6098790-8 (Version None)
Quarter: 2009Q1

REPORT INFORMATION
  Report Type: 
  Country: None (occurrence: None)
  Receive Date: 20090302
  Receipt Date: 20090226
  Transmission Date: 20090719
  Serious: Yes (Life-Threatening, Other)
  Sender: FDA-Public Use
  Company Number: JP-ASTRAZENECA-2009AP01527

PATIENT
  Age: 78 Year
  Sex: Male

DRUGS (1)
  1. DIPRIVAN [Suspect]
     Indication: SEDATION
     Dosage: 0.3-1 MG/KG/HR
     Route: 042

REACTIONS (2)
  - ARRHYTHMIA [None]
  - VENTRICULAR EXTRASYSTOLES [None]
